FAERS Safety Report 8163222 (Version 3)
Quarter: 2013Q4

REPORT INFORMATION
  Report Type: Spontaneous
  Country: US (occurrence: US)
  Receive Date: 20110930
  Receipt Date: 20131104
  Transmission Date: 20140711
  Serious: Yes (Hospitalization)
  Sender: FDA-Public Use
  Company Number: US-PFIZER INC-2011228769

PATIENT
  Age: 17 Year
  Sex: Female

DRUGS (1)
  1. IBUPROFEN [Suspect]
     Dosage: 56 G, 1 IN 1 TOTAL

REACTIONS (6)
  - Intentional overdose [Recovered/Resolved]
  - Convulsion [Recovered/Resolved]
  - Encephalopathy [Recovered/Resolved]
  - Acidosis [Recovered/Resolved]
  - Ataxia [Recovered/Resolved]
  - Hypernatraemia [Recovered/Resolved]
